FAERS Safety Report 10160863 (Version 1)
Quarter: 2014Q2

REPORT INFORMATION
  Report Type: Spontaneous
  Country: US (occurrence: US)
  Receive Date: 20140508
  Receipt Date: 20140508
  Transmission Date: 20141212
  Serious: Yes (Other)
  Sender: FDA-Public Use
  Company Number: US-TEVA-480452USA

PATIENT
  Age: 25 Year
  Sex: Female
  Weight: 53.12 kg

DRUGS (3)
  1. PARAGARD 380A [Suspect]
     Indication: CONTRACEPTION
     Route: 015
     Dates: start: 20140305, end: 20140505
  2. ATIVAN [Concomitant]
     Indication: PRODUCT USED FOR UNKNOWN INDICATION
     Route: 048
  3. PRO-AIR [Concomitant]
     Indication: ASTHMA

REACTIONS (3)
  - Embedded device [Recovered/Resolved]
  - Muscle spasms [Recovered/Resolved]
  - Pelvic pain [Unknown]
